FAERS Safety Report 4851437-8 (Version None)
Quarter: 2005Q4

REPORT INFORMATION
  Report Type: 
  Country: None (occurrence: None)
  Receive Date: 20051208
  Receipt Date: 20051129
  Transmission Date: 20060501
  Serious: Yes (Life-Threatening)
  Sender: FDA-Public Use
  Company Number: RGD:  547556/561

PATIENT
  Age: 35 Year
  Sex: Female

DRUGS (4)
  1. LEVONORGESTREL [Suspect]
     Indication: POST COITAL CONTRACEPTION
     Dosage: 1 TABLET, ORAL
     Route: 048
     Dates: start: 20050817, end: 20050818
  2. WARFARIN SODIUM [Suspect]
     Dosage: ORAL
     Route: 048
  3. SERETIDE (FLUTICASONE/SALMETEROL) [Concomitant]
  4. SALBUTAMOL (SALBUTAMOL) [Concomitant]

REACTIONS (3)
  - DRUG INTERACTION [None]
  - INTERNATIONAL NORMALISED RATIO INCREASED [None]
  - MENORRHAGIA [None]
